FAERS Safety Report 8032918-5 (Version None)
Quarter: 2011Q4

REPORT INFORMATION
  Report Type: 
  Country: None (occurrence: None)
  Receive Date: 20111202
  Receipt Date: 20110726
  Transmission Date: 20120403
  Serious: Yes (Hospitalization)
  Sender: FDA-Public Use
  Company Number: 2010SP040537

PATIENT
  Age: 37 Year
  Sex: Female
  Weight: 87.0906 kg

DRUGS (2)
  1. NUVARING [Suspect]
     Indication: CONTRACEPTION
     Dates: start: 20080801
  2. NUVARING [Suspect]
     Indication: CONTRACEPTION
     Dates: start: 20050501

REACTIONS (20)
  - ANXIETY [None]
  - DIVERTICULUM [None]
  - ABDOMINAL PAIN [None]
  - PAIN IN EXTREMITY [None]
  - ARTHRALGIA [None]
  - DEEP VEIN THROMBOSIS [None]
  - MAMMOGRAM ABNORMAL [None]
  - COUGH [None]
  - HAEMATURIA [None]
  - RENAL CYST [None]
  - HEADACHE [None]
  - BUNION [None]
  - DEPRESSION [None]
  - INSOMNIA [None]
  - MUSCLE SPASMS [None]
  - MENSTRUATION IRREGULAR [None]
  - HIGH RISK SEXUAL BEHAVIOUR [None]
  - URINARY TRACT INFECTION [None]
  - DIARRHOEA [None]
  - NAUSEA [None]
